FAERS Safety Report 18778426 (Version 1)
Quarter: 2021Q1

REPORT INFORMATION
  Report Type: Report from Study
  Country: US (occurrence: US)
  Receive Date: 20210123
  Receipt Date: 20210123
  Transmission Date: 20210419
  Serious: Yes (Death, Other)
  Sender: FDA-Public Use
  Company Number: US-ADVANZ PHARMA-202012011395

PATIENT

DRUGS (10)
  1. APIXABAN [Suspect]
     Active Substance: APIXABAN
     Route: 048
  2. FUROSEMIDE. [Suspect]
     Active Substance: FUROSEMIDE
     Route: 048
  3. POTASSIUM CHLORIDE. [Suspect]
     Active Substance: POTASSIUM CHLORIDE
     Route: 048
  4. METOLAZONE. [Suspect]
     Active Substance: METOLAZONE
     Route: 048
  5. CARVEDILOL. [Suspect]
     Active Substance: CARVEDILOL
     Route: 048
  6. ESCITALOPRAM [Suspect]
     Active Substance: ESCITALOPRAM OXALATE
     Route: 048
  7. DIGOXIN. [Suspect]
     Active Substance: DIGOXIN
     Route: 048
  8. AMIODARONE [Suspect]
     Active Substance: AMIODARONE
     Route: 048
  9. VITAMIN D [Suspect]
     Active Substance: VITAMIN D NOS
     Route: 048
  10. SALICYLATE [Suspect]
     Active Substance: SALICYLIC ACID
     Route: 048

REACTIONS (2)
  - Cardio-respiratory arrest [Fatal]
  - Adverse reaction [Fatal]
